FAERS Safety Report 6666549-6 (Version None)
Quarter: 2010Q2

REPORT INFORMATION
  Report Type: 
  Country: None (occurrence: None)
  Receive Date: 20100402
  Receipt Date: 20100326
  Transmission Date: 20101027
  Serious: Yes (Other)
  Sender: FDA-Public Use
  Company Number: AU-ABBOTT-10P-008-0624873-00

PATIENT
  Sex: Male
  Weight: 119 kg

DRUGS (1)
  1. REDUCTIL [Suspect]
     Indication: WEIGHT DECREASED
     Dates: start: 20041110, end: 20041208

REACTIONS (4)
  - ARRHYTHMIA [None]
  - BLOOD PRESSURE INCREASED [None]
  - FATIGUE [None]
  - HEART RATE DECREASED [None]
